FAERS Safety Report 22295630 (Version 1)
Quarter: 2023Q2

REPORT INFORMATION
  Report Type: Spontaneous
  Country: TW (occurrence: TW)
  Receive Date: 20230508
  Receipt Date: 20230508
  Transmission Date: 20230721
  Serious: Yes (Hospitalization)
  Sender: FDA-Public Use
  Company Number: TW-PFIZER INC-PV202300081199

PATIENT
  Age: 62 Year
  Sex: Female

DRUGS (11)
  1. XELJANZ XR [Suspect]
     Active Substance: TOFACITINIB CITRATE
     Indication: Rheumatoid arthritis
     Dosage: 11 MG, 1X/DAY
     Route: 048
     Dates: start: 20200603, end: 20230427
  2. METHOTREXATE [Concomitant]
     Active Substance: METHOTREXATE
     Dosage: 15 MG, WEEKLY
     Route: 048
  3. PLAQUENIL [Concomitant]
     Active Substance: HYDROXYCHLOROQUINE SULFATE
     Dosage: 200 MG, 2X/DAY
     Route: 048
  4. CELEBREX [Concomitant]
     Active Substance: CELECOXIB
     Dosage: 200 MG, 2X/DAY
     Route: 048
  5. METISONE [Concomitant]
     Dosage: 2 MG, 1X/DAY
     Route: 048
  6. FOLIC ACID [Concomitant]
     Active Substance: FOLIC ACID
     Dosage: 5 MG, 1X/DAY
     Route: 048
  7. ESTAZOLAM [Concomitant]
     Active Substance: ESTAZOLAM
     Dosage: 2 MG, HS
     Route: 048
  8. ZOPICLONE [Concomitant]
     Active Substance: ZOPICLONE
     Dosage: 7.5 MG, HS
     Route: 048
  9. XANAX [Concomitant]
     Active Substance: ALPRAZOLAM
     Dosage: 0.5 MG, 3X/DAY
     Route: 048
  10. LEXAPRO [Concomitant]
     Active Substance: ESCITALOPRAM OXALATE
     Dosage: 10 MG, 1X/DAY
     Route: 048
  11. PROPRANOLOL HYDROCHLORIDE [Concomitant]
     Active Substance: PROPRANOLOL HYDROCHLORIDE
     Dosage: 10 MG, 4X/DAY
     Route: 048

REACTIONS (1)
  - Osteoarthritis [Recovering/Resolving]
